FAERS Safety Report 17223381 (Version 1)
Quarter: 2020Q1

REPORT INFORMATION
  Report Type: Spontaneous
  Country: PT (occurrence: PT)
  Receive Date: 20200102
  Receipt Date: 20200102
  Transmission Date: 20200409
  Serious: Yes (Other)
  Sender: FDA-Public Use
  Company Number: PT-OCTA-GAM25519PT

PATIENT
  Age: 12 Day
  Sex: Male

DRUGS (1)
  1. OCTAGAM IMMUNE GLOBULIN (HUMAN) [Suspect]
     Active Substance: HUMAN IMMUNOGLOBULIN G
     Indication: PRODUCT USED FOR UNKNOWN INDICATION
     Dosage: 2 G/KG FOR 24 H
     Route: 042

REACTIONS (2)
  - Hepatitis B core antibody positive [Recovered/Resolved]
  - Hepatitis B surface antibody positive [Recovered/Resolved]
